FAERS Safety Report 14910470 (Version 2)
Quarter: 2018Q3

REPORT INFORMATION
  Report Type: Spontaneous
  Country: JP (occurrence: JP)
  Receive Date: 20180517
  Receipt Date: 20180705
  Transmission Date: 20181010
  Serious: Yes (Other)
  Sender: FDA-Public Use
  Company Number: JP-BAYER-2018-090855

PATIENT
  Age: 68 Year
  Sex: Male

DRUGS (4)
  1. NEXAVAR [Suspect]
     Active Substance: SORAFENIB
     Indication: LYMPHADENOPATHY
     Dosage: UNK
     Route: 048
     Dates: end: 201803
  2. STIVARGA [Suspect]
     Active Substance: REGORAFENIB
     Indication: LYMPHADENOPATHY
  3. NEXAVAR [Suspect]
     Active Substance: SORAFENIB
     Indication: HEPATOCELLULAR CARCINOMA
     Dosage: DAILY DOSE 400 MG
     Route: 048
     Dates: start: 201801
  4. STIVARGA [Suspect]
     Active Substance: REGORAFENIB
     Indication: HEPATOCELLULAR CARCINOMA
     Dosage: DAILY DOSE 160 MG
     Route: 048
     Dates: start: 201803

REACTIONS (5)
  - Lymphadenopathy [None]
  - Malaise [Unknown]
  - Hepatocellular carcinoma [Unknown]
  - Decreased appetite [Unknown]
  - Ascites [Unknown]

NARRATIVE: CASE EVENT DATE: 201803
